FAERS Safety Report 9853653 (Version 2)
Quarter: 2014Q1

REPORT INFORMATION
  Report Type: Spontaneous
  Country: US (occurrence: US)
  Receive Date: 20140129
  Receipt Date: 20140129
  Transmission Date: 20141002
  Serious: Yes (Disabling)
  Sender: FDA-Public Use
  Company Number: US-PFIZER INC-2013369204

PATIENT
  Age: 74 Year
  Sex: Male

DRUGS (2)
  1. PACLITAXEL [Suspect]
     Indication: LUNG SQUAMOUS CELL CARCINOMA STAGE III
     Dosage: 200 MG/M2, CYCLIC
  2. CARBOPLATIN [Concomitant]
     Indication: LUNG SQUAMOUS CELL CARCINOMA STAGE III
     Dosage: 230 MG/M2, CYCLIC

REACTIONS (1)
  - Phantom pain [Recovered/Resolved]
